FAERS Safety Report 4690545-1 (Version None)
Quarter: 2005Q2

REPORT INFORMATION
  Report Type: 
  Country: None (occurrence: None)
  Receive Date: 20050615
  Receipt Date: 20050601
  Transmission Date: 20051028
  Serious: Yes (Other)
  Sender: FDA-Public Use
  Company Number: JP-MERCK-0506USA01088

PATIENT

DRUGS (2)
  1. PEPCID [Suspect]
     Route: 042
  2. PEPCID [Suspect]
     Route: 042

REACTIONS (1)
  - RENAL FAILURE ACUTE [None]
